FAERS Safety Report 23210921 (Version 1)
Quarter: 2023Q4

REPORT INFORMATION
  Report Type: Spontaneous
  Country: US (occurrence: None)
  Receive Date: 20231120
  Receipt Date: 20231120
  Transmission Date: 20240109
  Serious: Yes (Hospitalization)
  Sender: FDA-Public Use
  Company Number: None

PATIENT
  Age: 51 Year
  Sex: Male

DRUGS (1)
  1. ENTYVIO [Suspect]
     Active Substance: VEDOLIZUMAB
     Indication: Colitis ulcerative
     Dosage: 300MG EVERY  6 WEEKS?

REACTIONS (6)
  - Thrombosis [None]
  - Colitis ulcerative [None]
  - COVID-19 [None]
  - Weight decreased [None]
  - Anaemia [None]
  - Clostridium difficile infection [None]

NARRATIVE: CASE EVENT DATE: 20231002
